FAERS Safety Report 7475031-8 (Version None)
Quarter: 2011Q2

REPORT INFORMATION
  Report Type: 
  Country: None (occurrence: None)
  Receive Date: 20110509
  Receipt Date: 20110509
  Transmission Date: 20111010
  Serious: Yes (Hospitalization)
  Sender: FDA-Public Use
  Company Number: None

PATIENT
  Sex: Male
  Weight: 72.5755 kg

DRUGS (2)
  1. E-MYCIN [Suspect]
     Indication: ACNE
     Dosage: ONE 333MG ONCE/DAY PO
     Route: 048
     Dates: start: 20081008, end: 20110508
  2. LOTRIMIN [Suspect]
     Indication: RASH
     Dosage: A LOT OVER BODY AFTER SHOWER ONCE OR TWICE/DAY TOP
     Route: 061
     Dates: start: 20050101, end: 20090201

REACTIONS (9)
  - HYPOAESTHESIA FACIAL [None]
  - BLOOD PRESSURE DECREASED [None]
  - CHROMATOPSIA [None]
  - ARRHYTHMIA [None]
  - HEART RATE INCREASED [None]
  - LOSS OF CONSCIOUSNESS [None]
  - PALPITATIONS [None]
  - HYPOAESTHESIA ORAL [None]
  - TUNNEL VISION [None]
